FAERS Safety Report 15858922 (Version 1)
Quarter: 2018Q4

REPORT INFORMATION
  Report Type: Spontaneous
  Country: US (occurrence: US)
  Receive Date: 20181228
  Receipt Date: 20181228
  Transmission Date: 20190205
  Serious: No
  Sender: FDA-Public Use
  Company Number: None

PATIENT
  Age: 75 Year
  Sex: Female

DRUGS (4)
  1. CARVEDILOL. [Concomitant]
     Active Substance: CARVEDILOL
  2. OMEPRAZOLE. [Concomitant]
     Active Substance: OMEPRAZOLE
  3. CEPHALEXIN. [Concomitant]
     Active Substance: CEPHALEXIN
  4. ENBREL [Suspect]
     Active Substance: ETANERCEPT
     Dates: start: 201712

REACTIONS (1)
  - Sinusitis [None]

NARRATIVE: CASE EVENT DATE: 20181227
